FAERS Safety Report 6327035-6 (Version None)
Quarter: 2009Q3

REPORT INFORMATION
  Report Type: 
  Country: None (occurrence: None)
  Receive Date: 20090821
  Receipt Date: 20090810
  Transmission Date: 20100115
  Serious: Yes (Life-Threatening, Hospitalization)
  Sender: FDA-Public Use
  Company Number: ADR11632009

PATIENT
  Age: 81 Year
  Sex: Female

DRUGS (6)
  1. METFORMIN  500 MG [Suspect]
     Indication: DIABETES MELLITUS INADEQUATE CONTROL
     Dosage: 500 MG BID ORAL
     Route: 048
     Dates: start: 20060516, end: 20060605
  2. GLICLAZIDE [Concomitant]
  3. AMITRIPTYLINE [Concomitant]
  4. PERINDOPRIL [Concomitant]
  5. SIMVASTATIN [Concomitant]
  6. SYMBICORT [Concomitant]

REACTIONS (3)
  - CIRCULATORY COLLAPSE [None]
  - FALL [None]
  - HYPOGLYCAEMIA [None]
